FAERS Safety Report 22240017 (Version 1)
Quarter: 2023Q2

REPORT INFORMATION
  Report Type: Spontaneous
  Country: FR (occurrence: FR)
  Receive Date: 20230421
  Receipt Date: 20230421
  Transmission Date: 20230722
  Serious: Yes (Death, Other)
  Sender: FDA-Public Use
  Company Number: None

PATIENT
  Age: 11 Day
  Sex: Female

DRUGS (5)
  1. ZOPICLONE [Suspect]
     Active Substance: ZOPICLONE
     Indication: Death of relative
     Dosage: 7.5 MILLIGRAM DAILY; 7.5 MG / DAY IN THE EVENING,
     Route: 064
     Dates: start: 202210, end: 20230217
  2. ALPRAZOLAM [Suspect]
     Active Substance: ALPRAZOLAM
     Indication: Death of relative
     Dosage: 1.5 MILLIGRAM DAILY; 0.5MG 3X/DAY,
     Route: 064
     Dates: start: 202210, end: 20230217
  3. CLOMIPRAMINE HYDROCHLORIDE [Suspect]
     Active Substance: CLOMIPRAMINE HYDROCHLORIDE
     Indication: Death of relative
     Dosage: 25 MILLIGRAM DAILY;
     Route: 064
     Dates: start: 202210, end: 20230217
  4. OXYCODONE HYDROCHLORIDE [Concomitant]
     Active Substance: OXYCODONE HYDROCHLORIDE
     Indication: Congenital cystic kidney disease
     Dosage: 60 MILLIGRAM DAILY; CPS, 10 MG 6 TIMES A DAY
     Dates: end: 202212
  5. FENTANYL [Concomitant]
     Active Substance: FENTANYL
     Indication: Congenital cystic kidney disease
     Dates: end: 202212

REACTIONS (4)
  - Sudden infant death syndrome [Fatal]
  - Hypotonia neonatal [Recovered/Resolved]
  - Postnatal growth restriction [Not Recovered/Not Resolved]
  - Agitation neonatal [Not Recovered/Not Resolved]

NARRATIVE: CASE EVENT DATE: 20230217
